FAERS Safety Report 10164489 (Version 1)
Quarter: 2014Q2

REPORT INFORMATION
  Report Type: Spontaneous
  Country: US (occurrence: US)
  Receive Date: 20140510
  Receipt Date: 20140510
  Transmission Date: 20141212
  Serious: No
  Sender: FDA-Public Use
  Company Number: US-BRISTOL-MYERS SQUIBB COMPANY-19535947

PATIENT
  Age: 67 Year
  Sex: Female

DRUGS (3)
  1. BYDUREON [Suspect]
     Indication: TYPE 2 DIABETES MELLITUS
     Dosage: 5 INJECTIONS ON 01OCT13
     Route: 058
     Dates: start: 20130903
  2. LANTUS [Concomitant]
  3. METFORMIN [Concomitant]

REACTIONS (2)
  - Diarrhoea [Not Recovered/Not Resolved]
  - Weight decreased [Unknown]
